FAERS Safety Report 8806173 (Version 1)
Quarter: 2012Q4

REPORT INFORMATION
  Report Type: 
  Country: BR (occurrence: BR)
  Receive Date: 20120925
  Receipt Date: 20120925
  Transmission Date: 20130627
  Serious: Yes (Other)
  Sender: FDA-Public Use
  Company Number: PHHY2012BR082813

PATIENT
  Sex: Female

DRUGS (7)
  1. FORASEQ [Suspect]
     Indication: DYSPNOEA
     Dosage: 01 DF, BID
  2. AMLODIPINE [Concomitant]
     Indication: BLOOD PRESSURE
     Dosage: 02 DF (05 mg)
  3. ATENOLOL [Concomitant]
     Indication: BLOOD PRESSURE
     Dosage: 02  DF (50 mg)
  4. ATENOLOL [Concomitant]
     Indication: HEART RATE INCREASED
  5. INDAPEN [Concomitant]
     Indication: POLYURIA
     Dosage: 01 DF, UNK
  6. SIMVASTATIN [Concomitant]
     Indication: BLOOD CHOLESTEROL INCREASED
     Dosage: 01 DF, UNK
  7. ALLOPURINOL [Concomitant]
     Indication: BLOOD URIC ACID
     Dosage: 01 DF, UNK

REACTIONS (3)
  - Foot fracture [Recovering/Resolving]
  - Osteoporosis [Unknown]
  - Influenza [Recovered/Resolved]
